FAERS Safety Report 4485867-3 (Version None)
Quarter: 2004Q3

REPORT INFORMATION
  Report Type: 
  Country: None (occurrence: None)
  Receive Date: 20040921
  Receipt Date: 20030918
  Transmission Date: 20050211
  Serious: Yes (Hospitalization)
  Sender: FDA-Public Use
  Company Number: 163-20785-03090591

PATIENT
  Age: 64 Year
  Sex: Male
  Weight: 59.8748 kg

DRUGS (15)
  1. THALOMID [Suspect]
     Indication: SMALL CELL LUNG CANCER STAGE UNSPECIFIED
     Dosage: 400 MG, QHS, ORAL
     Route: 048
     Dates: start: 20030906, end: 20030916
  2. IRINOTECAN HCL [Suspect]
     Indication: SMALL CELL LUNG CANCER STAGE UNSPECIFIED
     Dosage: 81 MG, Q 21 DAYS, INTRAVENOUS
     Route: 042
     Dates: start: 20030906, end: 20031027
  3. CARBOPLATIN [Suspect]
     Indication: SMALL CELL LUNG CANCER STAGE UNSPECIFIED
     Dosage: 436 MG, DAYS 1, 8 Q21D, INTRAVENOUS
     Route: 042
     Dates: start: 20030906, end: 20031014
  4. COUMADINE (WARFARIN SODIUM) (TABLETS) [Concomitant]
  5. PREDNISOLONE [Concomitant]
  6. SEREVENT INHALER (SALMETEROL XINAFOATE) (INHALANT) [Concomitant]
  7. RESERPINE [Concomitant]
  8. HYDROCHLOROTHIAZIDE [Concomitant]
  9. ZOLOFT [Concomitant]
  10. PEPCID [Concomitant]
  11. AMBIEN [Concomitant]
  12. OXYGEN (OXYGEN) [Concomitant]
  13. KLOR-CON [Concomitant]
  14. COMPAZINE [Concomitant]
  15. ZYRTEC [Concomitant]

REACTIONS (23)
  - ANOREXIA [None]
  - ATELECTASIS [None]
  - BRONCHITIS ACUTE [None]
  - COUGH [None]
  - DEEP VEIN THROMBOSIS [None]
  - DISEASE PROGRESSION [None]
  - DYSPNOEA [None]
  - HAEMATOCRIT DECREASED [None]
  - HAEMOGLOBIN DECREASED [None]
  - HAEMORRHOIDAL HAEMORRHAGE [None]
  - HYPOKALAEMIA [None]
  - INTERNATIONAL NORMALISED RATIO INCREASED [None]
  - LABORATORY TEST ABNORMAL [None]
  - LUNG INFILTRATION [None]
  - NEUTROPENIC SEPSIS [None]
  - OEDEMA PERIPHERAL [None]
  - ORTHOSTATIC HYPOTENSION [None]
  - PANCYTOPENIA [None]
  - PROTHROMBIN TIME PROLONGED [None]
  - PULMONARY EMBOLISM [None]
  - PULMONARY HILUM MASS [None]
  - RED BLOOD CELL COUNT DECREASED [None]
  - WHITE BLOOD CELL COUNT DECREASED [None]
